FAERS Safety Report 19087416 (Version 3)
Quarter: 2021Q4

REPORT INFORMATION
  Report Type: Report from Study
  Country: UG (occurrence: UG)
  Receive Date: 20210402
  Receipt Date: 20211228
  Transmission Date: 20220303
  Serious: Yes (Hospitalization, Other)
  Sender: FDA-Public Use
  Company Number: UG-CIPLA LTD.-2021UG02482

PATIENT

DRUGS (2)
  1. LOPINAVIR\RITONAVIR [Suspect]
     Active Substance: LOPINAVIR\RITONAVIR
     Indication: HIV infection WHO clinical stage IV
     Dosage: 1 DOSAGE FORM, BID, (80MG/20MG BID DAILY)
     Route: 048
     Dates: start: 20160809, end: 20180612
  2. SULFAMETHOXAZOLE\TRIMETHOPRIM [Concomitant]
     Active Substance: SULFAMETHOXAZOLE\TRIMETHOPRIM
     Indication: Prophylaxis
     Dosage: 240 MILLIGRAM, QD
     Route: 065
     Dates: start: 20160809

REACTIONS (6)
  - Gastroenteritis [Recovered/Resolved]
  - Respiratory tract infection [Recovered/Resolved]
  - Tinea capitis [Recovered/Resolved]
  - Febrile infection [Recovered/Resolved]
  - Anaemia [Recovered/Resolved]
  - Diarrhoea [Recovered/Resolved]

NARRATIVE: CASE EVENT DATE: 20160819
